FAERS Safety Report 8165055-X (Version None)
Quarter: 2012Q1

REPORT INFORMATION
  Report Type: 
  Country: None (occurrence: None)
  Receive Date: 20120227
  Receipt Date: 20120215
  Transmission Date: 20120608
  Serious: No
  Sender: FDA-Public Use
  Company Number: US-BIOGENIDEC-2012BI006429

PATIENT
  Age: 41 Year
  Sex: Female

DRUGS (2)
  1. AVONEX [Suspect]
     Indication: MULTIPLE SCLEROSIS
     Route: 030
     Dates: end: 20000101
  2. AVONEX [Suspect]
     Route: 030
     Dates: start: 20110729

REACTIONS (8)
  - GAIT DISTURBANCE [None]
  - LOSS OF CONTROL OF LEGS [None]
  - LIVEDO RETICULARIS [None]
  - MULTIPLE SCLEROSIS [None]
  - MOBILITY DECREASED [None]
  - OEDEMA PERIPHERAL [None]
  - SWELLING FACE [None]
  - ERYTHEMA [None]
